FAERS Safety Report 25849609 (Version 1)
Quarter: 2025Q3

REPORT INFORMATION
  Report Type: Report from Study
  Country: CA (occurrence: CA)
  Receive Date: 20250926
  Receipt Date: 20250926
  Transmission Date: 20251020
  Serious: Yes (Other)
  Sender: UCB
  Company Number: CA-UCBSA-2025059479

PATIENT
  Age: 50 Year
  Sex: Male

DRUGS (1)
  1. BIMEKIZUMAB [Suspect]
     Active Substance: BIMEKIZUMAB
     Indication: Psoriatic arthropathy
     Dosage: 160 MILLIGRAM, EV 4 WEEKS
     Route: 058
     Dates: start: 20250915

REACTIONS (3)
  - Choroid plexus carcinoma [Unknown]
  - Anxiety [Unknown]
  - Mood altered [Unknown]

NARRATIVE: CASE EVENT DATE: 20250901
